FAERS Safety Report 16444100 (Version 9)
Quarter: 2020Q3

REPORT INFORMATION
  Report Type: Report from Study
  Country: JP (occurrence: JP)
  Receive Date: 20190618
  Receipt Date: 20200722
  Transmission Date: 20201102
  Serious: Yes (Death, Hospitalization, Disabling, Other)
  Sender: FDA-Public Use
  Company Number: JP-GLAXOSMITHKLINE-JP2019JPN108916

PATIENT
  Sex: Male
  Weight: 98 kg

DRUGS (23)
  1. MEPOLIZUMAB [Suspect]
     Active Substance: MEPOLIZUMAB
     Indication: ASTHMA
     Dosage: 300 MG, QD
     Route: 058
     Dates: start: 20190322, end: 20190322
  2. LANSOPRAZOLE?OD TABLETS [Concomitant]
     Indication: PROPHYLAXIS AGAINST GASTROINTESTINAL ULCER
     Dosage: 15 MG, UNK
  3. MEPOLIZUMAB [Suspect]
     Active Substance: MEPOLIZUMAB
     Indication: NEUROPATHY PERIPHERAL
     Dosage: 300 MG, QD
     Route: 058
     Dates: start: 20190416, end: 20190416
  4. MEPOLIZUMAB [Suspect]
     Active Substance: MEPOLIZUMAB
     Indication: EOSINOPHILIC GRANULOMATOSIS WITH POLYANGIITIS
     Dosage: 300 MG, QD
     Route: 058
     Dates: start: 20190222, end: 20190222
  5. FOSAMAC [Concomitant]
     Active Substance: ALENDRONATE SODIUM
     Indication: OSTEOPOROSIS PROPHYLAXIS
     Dosage: 35 MG, UNK
  6. NIFEDIPINE CR TABLETS [Concomitant]
     Indication: HYPERTENSION
     Dosage: 10 MG, UNK
  7. PREDONINE [Concomitant]
     Active Substance: PREDNISOLONE
     Dosage: 10 MG, 1D
     Dates: start: 20190222, end: 20190321
  8. PREDONINE [Concomitant]
     Active Substance: PREDNISOLONE
     Dosage: 5 MG, 1D
     Dates: start: 20190322, end: 20190509
  9. BAKTAR [Concomitant]
     Active Substance: SULFAMETHOXAZOLE\TRIMETHOPRIM
     Indication: OPPORTUNISTIC INFECTION PROPHYLAXIS
     Dosage: 0.5 DF, 1D
  10. SYMBICORT [Suspect]
     Active Substance: BUDESONIDE\FORMOTEROL FUMARATE DIHYDRATE
     Dosage: 240 ?G, 1D
     Dates: end: 20190607
  11. METHYCOBAL [Concomitant]
     Active Substance: METHYLCOBALAMIN
     Indication: EOSINOPHILIC GRANULOMATOSIS WITH POLYANGIITIS
     Dosage: 1500 ?G, 1D
  12. TRAMAL [Concomitant]
     Active Substance: TRAMADOL
     Dosage: 75 MG, 1D
  13. VOGLIBOSE [Concomitant]
     Active Substance: VOGLIBOSE
     Dosage: 0.6 MG, 1D
  14. PREDONINE [Concomitant]
     Active Substance: PREDNISOLONE
     Dosage: 10 MG, 1D
     Dates: start: 20190510, end: 20190607
  15. PREDONINE [Concomitant]
     Active Substance: PREDNISOLONE
     Indication: EOSINOPHILIC GRANULOMATOSIS WITH POLYANGIITIS
     Dosage: 15 MG, 1D
     Dates: end: 20190221
  16. LYRICA [Concomitant]
     Active Substance: PREGABALIN
     Indication: EOSINOPHILIC GRANULOMATOSIS WITH POLYANGIITIS
     Dosage: 100 MG, 1D
  17. NEXIUM [Concomitant]
     Active Substance: ESOMEPRAZOLE MAGNESIUM
     Dosage: 20 MG, 1D
  18. MEPOLIZUMAB [Suspect]
     Active Substance: MEPOLIZUMAB
     Dosage: 300 MG, QD
     Route: 058
     Dates: start: 20190601, end: 20190601
  19. TRYPTANOL TABLETS (AMITRIPTYLINE HYDROCHLORIDE) [Concomitant]
     Indication: EOSINOPHILIC GRANULOMATOSIS WITH POLYANGIITIS
     Dosage: 10 MG, 1D
  20. FEBURIC [Concomitant]
     Active Substance: FEBUXOSTAT
     Indication: HYPERURICAEMIA
     Dosage: 10 MG, 1D
  21. FUROSEMIDE. [Concomitant]
     Active Substance: FUROSEMIDE
     Dosage: 20 MG, 1D
  22. NEUROTROPIN (JAPAN) [Concomitant]
     Indication: EOSINOPHILIC GRANULOMATOSIS WITH POLYANGIITIS
     Dosage: 8 UNIT, 1D
  23. TENELIA [Concomitant]
     Active Substance: TENELIGLIPTIN
     Indication: DIABETES MELLITUS
     Dosage: 20 MG, UNK

REACTIONS (11)
  - Mononeuropathy multiplex [Fatal]
  - Circulatory collapse [Fatal]
  - Thalamus haemorrhage [Fatal]
  - Blood glucose increased [Recovering/Resolving]
  - Pleural effusion [Fatal]
  - Neuropathy peripheral [Fatal]
  - Pleurisy [Fatal]
  - Loss of consciousness [Fatal]
  - Dehydration [Recovered/Resolved]
  - Oedema [Recovering/Resolving]
  - Inappropriate schedule of product administration [Unknown]

NARRATIVE: CASE EVENT DATE: 20190503
